FAERS Safety Report 7035656 (Version 2)
Quarter: 2014Q1

REPORT INFORMATION
  Report Type: Spontaneous
  Country: US (occurrence: None)
  Receive Date: 20090615
  Receipt Date: 20140113
  Transmission Date: 20141002
  Serious: Yes (Hospitalization, Other)
  Sender: FDA-Public Use
  Company Number: 2009S1004584

PATIENT
  Age: 56 Year
  Sex: Female
  Weight: 98.88 kg

DRUGS (10)
  1. FLEET PHOSPHO-SODA [Suspect]
     Indication: COLONOSCOPY
     Dosage: 2 IN 24 HOURS
     Route: 048
     Dates: start: 20080903, end: 20080903
  2. DULCOLAX (BISACODYL) [Suspect]
     Indication: COLONOSCOPY
     Dosage: 4 IN 24 HOURS
     Route: 048
     Dates: start: 20080209, end: 20080209
  3. AMARYL (GLIMEPIRIDE) [Concomitant]
  4. METFORMIN (METFORMIN) [Concomitant]
  5. JANUVIA (SITAGLIPTIN PHOSPHATE) [Concomitant]
  6. SYNTHROID (LEVOTHYROXINE SODIUM) [Concomitant]
  7. PRAVACHOL (PRAVASTATIN SODIUM) [Concomitant]
  8. MOBIC (MELOXICAM) [Concomitant]
  9. LISINOPRIL (LISINOPRIL) [Concomitant]
  10. HYDROCHLOROTHIAZIDE (HYDROCHLOROTHIAZIDE) [Concomitant]

REACTIONS (4)
  - Renal failure chronic [None]
  - Nephropathy [None]
  - Acute phosphate nephropathy [None]
  - Renal failure acute [None]
